FAERS Safety Report 5662598-5 (Version None)
Quarter: 2008Q1

REPORT INFORMATION
  Report Type: 
  Country: None (occurrence: None)
  Receive Date: 20080310
  Receipt Date: 20080310
  Transmission Date: 20080703
  Serious: Yes (Hospitalization)
  Sender: FDA-Public Use
  Company Number: None

PATIENT
  Sex: Female
  Weight: 92 kg

DRUGS (1)
  1. TAXOL [Suspect]
     Dosage: 350 MG

REACTIONS (8)
  - CATHETER SITE ERYTHEMA [None]
  - CELLULITIS [None]
  - CHILLS [None]
  - ERYTHEMA [None]
  - NAUSEA [None]
  - NEUTROPENIA [None]
  - SKIN EXFOLIATION [None]
  - VOMITING [None]
